FAERS Safety Report 4293058-4 (Version None)
Quarter: 2004Q1

REPORT INFORMATION
  Report Type: 
  Country: None (occurrence: None)
  Receive Date: 20040212
  Receipt Date: 20011011
  Transmission Date: 20041129
  Serious: Yes (Hospitalization, Other)
  Sender: FDA-Public Use
  Company Number: US-GLAXOSMITHKLINE-A0353706A

PATIENT
  Age: 67 Year
  Sex: Female
  Weight: 71.2 kg

DRUGS (10)
  1. PAXIL [Suspect]
     Indication: DEPRESSION
     Dosage: 20MG PER DAY
     Route: 048
     Dates: start: 19970201, end: 19970201
  2. PAXIL [Suspect]
     Dosage: 5MG PER DAY
     Route: 048
     Dates: start: 20011015, end: 20011001
  3. PAXIL [Suspect]
     Dosage: 10MG PER DAY
     Route: 048
     Dates: start: 19970201, end: 20011015
  4. PAXIL [Suspect]
     Dosage: 3MG PER DAY
     Route: 048
     Dates: start: 20011001, end: 20010101
  5. LANOXIN [Concomitant]
  6. SINGULAIR [Concomitant]
  7. ALBUTEROL [Concomitant]
  8. PREDNISONE [Concomitant]
  9. VASOTEC [Concomitant]
  10. AMBIEN [Concomitant]

REACTIONS (19)
  - ALOPECIA [None]
  - ANGINA PECTORIS [None]
  - ASTHENIA [None]
  - ATRIAL FIBRILLATION [None]
  - DEHYDROEPIANDROSTERONE INCREASED [None]
  - DIZZINESS [None]
  - DRUG WITHDRAWAL SYNDROME [None]
  - DRY SKIN [None]
  - EYE PAIN [None]
  - JOINT SWELLING [None]
  - MUSCLE ATROPHY [None]
  - MUSCLE CRAMP [None]
  - MUSCLE SPASMS [None]
  - MUSCLE TIGHTNESS [None]
  - NEUROPATHY PERIPHERAL [None]
  - PRURITUS [None]
  - SKIN DISCOLOURATION [None]
  - SWELLING FACE [None]
  - VASODILATION PROCEDURE [None]
